FAERS Safety Report 24292511 (Version 1)
Quarter: 2024Q3

REPORT INFORMATION
  Report Type: Spontaneous
  Country: AU (occurrence: None)
  Receive Date: 20240905
  Receipt Date: 20240905
  Transmission Date: 20241017
  Serious: Yes (Hospitalization)
  Sender: Public
  Company Number: None

PATIENT
  Age: 58 Year
  Sex: Male
  Weight: 70 kg

DRUGS (2)
  1. HERBALS\WITHANIA SOMNIFERA ROOT [Suspect]
     Active Substance: HERBALS\WITHANIA SOMNIFERA ROOT
     Indication: Sleep disorder
     Dates: start: 20240830, end: 20240830
  2. SCOPOLAMINE [Suspect]
     Active Substance: SCOPOLAMINE

REACTIONS (3)
  - Cerebrovascular accident [None]
  - Seizure [None]
  - Meningitis [None]

NARRATIVE: CASE EVENT DATE: 20240830
